FAERS Safety Report 12479834 (Version 1)
Quarter: 2016Q2

REPORT INFORMATION
  Report Type: Spontaneous
  Country: US (occurrence: US)
  Receive Date: 20160620
  Receipt Date: 20160620
  Transmission Date: 20160815
  Serious: No
  Sender: FDA-Public Use
  Company Number: US-ENDO PHARMACEUTICALS INC.-2015-002441

PATIENT
  Age: 75 Year
  Sex: Female
  Weight: 82.17 kg

DRUGS (2)
  1. LUBRIDERM [Concomitant]
     Active Substance: AVOBENZONE\HOMOSALATE\OCTISALATE\OCTOCRYLENE\OXYBENZONE
     Indication: ECZEMA
  2. TRIAMCINOLONE ACETONIDE CREAM 0.1 [Suspect]
     Active Substance: TRIAMCINOLONE ACETONIDE
     Indication: ECZEMA
     Route: 061
     Dates: start: 20150806

REACTIONS (3)
  - Unevaluable event [Unknown]
  - Pruritus [Recovering/Resolving]
  - Application site rash [Unknown]

NARRATIVE: CASE EVENT DATE: 20150806
